FAERS Safety Report 7389191-0 (Version None)
Quarter: 2011Q1

REPORT INFORMATION
  Report Type: 
  Country: None (occurrence: None)
  Receive Date: 20110329
  Receipt Date: 20110329
  Transmission Date: 20110831
  Serious: Yes (Other)
  Sender: FDA-Public Use
  Company Number: None

PATIENT
  Sex: Female
  Weight: 66.6788 kg

DRUGS (2)
  1. PAROXETINE [Suspect]
     Indication: DEPRESSION
     Dosage: 20 MG 1 TAB DAILY ORAL
     Route: 048
     Dates: start: 20080601
  2. ARICEPT [Suspect]
     Indication: DEMENTIA
     Dosage: 5MG + 10 MG 1 TAB DAILY ORAL
     Route: 048
     Dates: start: 20090601

REACTIONS (1)
  - DIARRHOEA [None]
